FAERS Safety Report 16716218 (Version 6)
Quarter: 2020Q1

REPORT INFORMATION
  Report Type: Spontaneous
  Country: US (occurrence: US)
  Receive Date: 20190819
  Receipt Date: 20200325
  Transmission Date: 20200409
  Serious: Yes (Other)
  Sender: FDA-Public Use
  Company Number: US-AMICUS THERAPEUTICS, INC.-AMI_494

PATIENT
  Age: 66 Year
  Sex: Female

DRUGS (2)
  1. NEURONTIN [Concomitant]
     Active Substance: GABAPENTIN
     Indication: PAIN MANAGEMENT
     Dosage: UNK
  2. GALAFOLD [Suspect]
     Active Substance: MIGALASTAT HYDROCHLORIDE
     Indication: FABRY^S DISEASE
     Dosage: 123 MILLIGRAM, QOD
     Route: 048
     Dates: start: 201808

REACTIONS (11)
  - Fatigue [Unknown]
  - Hyperhidrosis [Unknown]
  - Vitreous floaters [Unknown]
  - Fatigue [Unknown]
  - Barrett^s oesophagus [Recovering/Resolving]
  - Oesophageal ulcer [Unknown]
  - Feeling abnormal [Unknown]
  - Cataract [Unknown]
  - Back pain [Unknown]
  - Oesophageal irritation [Recovering/Resolving]
  - Pain [Unknown]

NARRATIVE: CASE EVENT DATE: 201908
